FAERS Safety Report 7270262-4 (Version None)
Quarter: 2011Q1

REPORT INFORMATION
  Report Type: 
  Country: None (occurrence: None)
  Receive Date: 20110125
  Receipt Date: 20110113
  Transmission Date: 20110831
  Serious: Yes (Hospitalization)
  Sender: FDA-Public Use
  Company Number: 0215947

PATIENT
  Age: 64 Year
  Sex: Male

DRUGS (1)
  1. TACHOSIL [Suspect]
     Indication: PANCREATECTOMY
     Dates: start: 20090805, end: 20090805

REACTIONS (2)
  - POST PROCEDURAL COMPLICATION [None]
  - LEUKOCYTOSIS [None]
